FAERS Safety Report 6239060-4 (Version None)
Quarter: 2009Q2

REPORT INFORMATION
  Report Type: 
  Country: None (occurrence: None)
  Receive Date: 20090622
  Receipt Date: 20090615
  Transmission Date: 20091009
  Serious: Yes (Death, Other)
  Sender: FDA-Public Use
  Company Number: PHHY2009US23537

PATIENT
  Age: 63 Year
  Sex: Male

DRUGS (5)
  1. CYCLOSPORINE [Suspect]
     Indication: HEART TRANSPLANT
     Dosage: 125 MG, BID
     Dates: start: 19920101
  2. CYCLOSPORINE [Suspect]
     Dosage: 50 MG, BID
     Dates: start: 20020901
  3. MYCOPHENOLATE MOFETIL [Suspect]
     Indication: HEART TRANSPLANT
     Dosage: 750 MG, TID
     Dates: start: 19920101
  4. MYCOPHENOLATE MOFETIL [Suspect]
     Dosage: 250 MG, TID
     Dates: start: 20020901
  5. PREDNISONE [Suspect]
     Indication: HEART TRANSPLANT
     Dosage: 5 MG EVERY OTHER DAY
     Dates: start: 19920101

REACTIONS (20)
  - ANAEMIA [None]
  - ASTHENIA [None]
  - BONE LESION [None]
  - BRAIN MASS [None]
  - DIPLOPIA [None]
  - DISORDER OF ORBIT [None]
  - EPILEPSY [None]
  - EPSTEIN-BARR VIRUS ASSOCIATED LYMPHOPROLIFERATIVE DISORDER [None]
  - EPSTEIN-BARR VIRUS INFECTION [None]
  - EXOPHTHALMOS [None]
  - EYE PAIN [None]
  - HEPATIC NEOPLASM [None]
  - LYMPHADENOPATHY [None]
  - LYMPHATIC SYSTEM NEOPLASM [None]
  - NASAL SINUS CANCER [None]
  - PLEURAL NEOPLASM [None]
  - PROSTATE CANCER STAGE III [None]
  - PYREXIA [None]
  - RENAL FAILURE [None]
  - RETRO-ORBITAL NEOPLASM [None]
